FAERS Safety Report 10497311 (Version 2)
Quarter: 2014Q4

REPORT INFORMATION
  Report Type: Spontaneous
  Country: JP (occurrence: JP)
  Receive Date: 20141006
  Receipt Date: 20141006
  Transmission Date: 20150528
  Serious: Yes (Death, Other)
  Sender: FDA-Public Use
  Company Number: PHHY2013JP158415

PATIENT
  Age: 77 Year
  Sex: Male
  Weight: 50 kg

DRUGS (4)
  1. THALIDOMIDE [Concomitant]
     Active Substance: THALIDOMIDE
     Indication: PLASMA CELL MYELOMA
     Dosage: 100 MG, DAILY
     Route: 048
     Dates: start: 20130104, end: 20130606
  2. EXJADE [Suspect]
     Active Substance: DEFERASIROX
     Dosage: 1000 MG, DAILY
     Route: 048
     Dates: start: 20130124, end: 20130207
  3. EXJADE [Suspect]
     Active Substance: DEFERASIROX
     Dosage: 500 MG, DAILY
     Route: 048
     Dates: start: 20130415, end: 20130606
  4. EXJADE [Suspect]
     Active Substance: DEFERASIROX
     Indication: PLASMA CELL MYELOMA
     Dosage: 500 MG, DAILY
     Route: 048
     Dates: start: 20130110, end: 20130123

REACTIONS (10)
  - Malignant neoplasm progression [Fatal]
  - White blood cell count decreased [Unknown]
  - Renal impairment [Recovered/Resolved]
  - Haemoglobin decreased [Unknown]
  - Platelet count decreased [Unknown]
  - Plasma cell myeloma [Fatal]
  - Blood lactate dehydrogenase increased [Unknown]
  - Blood creatinine increased [Unknown]
  - Aspartate aminotransferase increased [Unknown]
  - Alanine aminotransferase increased [Unknown]

NARRATIVE: CASE EVENT DATE: 20130207
